FAERS Safety Report 10155333 (Version 2)
Quarter: 2014Q2

REPORT INFORMATION
  Report Type: Spontaneous
  Country: US (occurrence: US)
  Receive Date: 20140506
  Receipt Date: 20140515
  Transmission Date: 20141212
  Serious: No
  Sender: FDA-Public Use
  Company Number: US-BAYER-2014-059430

PATIENT
  Age: 79 Year
  Sex: Male
  Weight: 99.77 kg

DRUGS (8)
  1. PHILLIPS^ MILK OF MAGNESIA LIQUID ORIGINAL [Suspect]
     Indication: CONSTIPATION
     Dosage: 3 TBSP, ONCE
     Route: 048
     Dates: start: 20140416
  2. ALEVE CAPLET [Suspect]
     Indication: BACK PAIN
     Dosage: 2 DF, Q4HR
     Route: 048
     Dates: end: 20140415
  3. BAYER GENUINE ASPIRIN ORIGINAL STRENGTH [Suspect]
     Indication: BACK PAIN
     Dosage: UNK
     Route: 048
  4. ASPIRIN [Concomitant]
  5. FISH OIL [Concomitant]
  6. VITAMIN E [Concomitant]
  7. VITAMIN B12 [Concomitant]
  8. VITAMIN C [Concomitant]

REACTIONS (5)
  - Drug ineffective [None]
  - Incorrect dose administered [None]
  - Rash [Recovered/Resolved]
  - Pruritus [Recovered/Resolved]
  - Drug hypersensitivity [None]
